FAERS Safety Report 5471465-1 (Version None)
Quarter: 2007Q3

REPORT INFORMATION
  Report Type: 
  Country: None (occurrence: None)
  Receive Date: 20070928
  Receipt Date: 20061103
  Transmission Date: 20080115
  Serious: No
  Sender: FDA-Public Use
  Company Number: US-BRISTOL-MYERS SQUIBB COMPANY-13566542

PATIENT
  Age: 69 Year
  Sex: Male
  Weight: 70 kg

DRUGS (17)
  1. DEFINITY [Suspect]
     Indication: ECHOCARDIOGRAM
     Dosage: UNDILUTED BOLUS 0.3CC IV THEN AN ADDITIONAL 0.2CC IV GIVEN
     Route: 042
     Dates: start: 20061103, end: 20061103
  2. NPH INSULIN [Concomitant]
  3. REGULAR INSULIN [Concomitant]
  4. NEPHROCAPS [Concomitant]
  5. LASIX [Concomitant]
  6. METOPROLOL SUCCINATE [Concomitant]
  7. WARFARIN [Concomitant]
  8. SENOKOT [Concomitant]
  9. NEXIUM [Concomitant]
  10. OXYCODONE HCL [Concomitant]
  11. ZOSYN [Concomitant]
  12. FENTANYL TRANSDERMAL SYSTEM [Concomitant]
  13. LINEZOLID [Concomitant]
  14. COLACE [Concomitant]
  15. TYLENOL (CAPLET) [Concomitant]
  16. LACTULOSE [Concomitant]
  17. LORTAB [Concomitant]

REACTIONS (1)
  - BACK PAIN [None]
